FAERS Safety Report 4766684-3 (Version None)
Quarter: 2005Q3

REPORT INFORMATION
  Report Type: 
  Country: None (occurrence: None)
  Receive Date: 20050909
  Receipt Date: 20050831
  Transmission Date: 20060218
  Serious: Yes (Death)
  Sender: FDA-Public Use
  Company Number: 05-08-1385

PATIENT
  Age: 51 Year
  Sex: Female
  Weight: 88.905 kg

DRUGS (9)
  1. CLOZAPINE [Suspect]
     Indication: SCHIZOAFFECTIVE DISORDER
     Dosage: 700MG QD, ORAL
     Route: 048
     Dates: start: 20000701, end: 20050401
  2. RISPERDAL [Concomitant]
  3. ZYPREXA [Concomitant]
  4. PREVACID [Concomitant]
  5. HYOSCYAMINE (HYOSCYAMINE) [Concomitant]
  6. CLARINEX [Concomitant]
  7. MICARDIS [Concomitant]
  8. VERELAN (VERAPAMIL HYDROCHLORIDE) [Concomitant]
  9. LIPITOR [Concomitant]

REACTIONS (4)
  - ANOXIC ENCEPHALOPATHY [None]
  - APALLIC SYNDROME [None]
  - ASPIRATION [None]
  - BRAIN DAMAGE [None]
